FAERS Safety Report 7973148-2 (Version None)
Quarter: 2011Q4

REPORT INFORMATION
  Report Type: 
  Country: None (occurrence: None)
  Receive Date: 20111213
  Receipt Date: 20111206
  Transmission Date: 20120403
  Serious: Yes (Death)
  Sender: FDA-Public Use
  Company Number: JP-ASTELLAS-2011JP009010

PATIENT
  Age: 64 Year
  Sex: Male

DRUGS (4)
  1. MEROPENEM [Concomitant]
     Route: 065
  2. FUNGUARD [Suspect]
     Route: 065
  3. MINOCYCLINE HCL [Concomitant]
     Dosage: UNK
     Route: 065
  4. LEVOFLOXACIN [Concomitant]
     Indication: PNEUMONIA
     Route: 065

REACTIONS (1)
  - DRUG INEFFECTIVE [None]
